FAERS Safety Report 8333152 (Version 2)
Quarter: 2014Q2

REPORT INFORMATION
  Report Type: Spontaneous
  Country: US (occurrence: US)
  Receive Date: 20111130
  Receipt Date: 20140407
  Transmission Date: 20141212
  Serious: Yes (Hospitalization, Other)
  Sender: FDA-Public Use
  Company Number: US201104002756

PATIENT
  Age: 54 Year
  Sex: Female
  Weight: 101.13 kg

DRUGS (14)
  1. BYETTA PEN DISPOSABLE [Suspect]
  2. BYETTA PEN DISPOSABLE [Suspect]
     Dates: start: 200507
  3. METFORMIN HCL [Suspect]
  4. LISINOPRIL [Suspect]
  5. HUMULIN [Concomitant]
  6. TRIGLIDE [Concomitant]
  7. PRAVACHOL [Concomitant]
  8. CALCIUM CITRATE [Concomitant]
  9. OXYCONTIN [Concomitant]
  10. PERCOCET [Concomitant]
  11. METAMUCIL [Concomitant]
  12. ACIPHEX [Concomitant]
  13. PHENERGAN [Concomitant]
     Indication: NAUSEA
  14. DILAUDID [Concomitant]
     Indication: PAIN

REACTIONS (4)
  - Pancreatitis acute [Unknown]
  - Diarrhoea [Unknown]
  - Weight decreased [Unknown]
  - Off label use [Recovered/Resolved]
